FAERS Safety Report 15140931 (Version 2)
Quarter: 2018Q3

REPORT INFORMATION
  Report Type: Spontaneous
  Country: US (occurrence: US)
  Receive Date: 20180713
  Receipt Date: 20180724
  Transmission Date: 20181010
  Serious: No
  Sender: FDA-Public Use
  Company Number: US-PFIZER INC-2018277346

PATIENT

DRUGS (7)
  1. DOPAMINE HCL [Suspect]
     Active Substance: DOPAMINE HYDROCHLORIDE
     Indication: CARDIAC ARREST
     Dosage: UNK
     Route: 064
  2. NITRIC OXIDE. [Suspect]
     Active Substance: NITRIC OXIDE
     Indication: CARDIAC ARREST
     Dosage: UNK
     Route: 064
  3. EPINEPHRINE. [Suspect]
     Active Substance: EPINEPHRINE
     Dosage: UNK
     Route: 064
  4. DOBUTAMINE HCL [Suspect]
     Active Substance: DOBUTAMINE HYDROCHLORIDE
     Indication: CARDIAC ARREST
     Dosage: UNK
     Route: 064
  5. NOREPINEPHRINE BITARTRATE. [Suspect]
     Active Substance: NOREPINEPHRINE BITARTRATE
     Indication: CARDIAC ARREST
     Dosage: QUICKLY TITRATED TO THE MAXIMUM DOSE OF 30 MCG/MINUTE
     Route: 064
  6. EPINEPHRINE. [Suspect]
     Active Substance: EPINEPHRINE
     Indication: CARDIAC ARREST
     Dosage: UNK (MULTIPLE DOSES)
     Route: 064
  7. ENOXAPARIN SODIUM. [Suspect]
     Active Substance: ENOXAPARIN SODIUM
     Indication: CARDIAC ARREST
     Dosage: UNK
     Route: 064

REACTIONS (1)
  - Maternal exposure during pregnancy [Unknown]
